FAERS Safety Report 19843943 (Version 1)
Quarter: 2021Q3

REPORT INFORMATION
  Report Type: Other
  Country: US (occurrence: US)
  Receive Date: 20210917
  Receipt Date: 20210917
  Transmission Date: 20211014
  Serious: Yes (Death)
  Sender: FDA-Public Use
  Company Number: US-KNIGHT THERAPEUTICS (USA) INC.-2118487

PATIENT
  Age: 27 Year
  Sex: Male

DRUGS (6)
  1. IMPAVIDO [Suspect]
     Active Substance: MILTEFOSINE
     Indication: ACANTHAMOEBA INFECTION
  2. SULFADIAZINE. [Concomitant]
     Active Substance: SULFADIAZINE
  3. FLUCYTOSINE. [Concomitant]
     Active Substance: FLUCYTOSINE
  4. PENTAMIDINE ISETHIONATE. [Concomitant]
     Active Substance: PENTAMIDINE ISETHIONATE
  5. FLUCONAZOLE. [Concomitant]
     Active Substance: FLUCONAZOLE
  6. AZITHROMYCIN ANHYDROUS. [Concomitant]
     Active Substance: AZITHROMYCIN ANHYDROUS

REACTIONS (2)
  - Off label use [None]
  - Drug ineffective for unapproved indication [Fatal]
